FAERS Safety Report 9824691 (Version 3)
Quarter: 2014Q1

REPORT INFORMATION
  Report Type: Report from Study
  Country: CA (occurrence: CA)
  Receive Date: 20140117
  Receipt Date: 20140118
  Transmission Date: 20141002
  Serious: Yes (Other)
  Sender: FDA-Public Use
  Company Number: CA-ROCHE-1262406

PATIENT
  Sex: Female
  Weight: 70 kg

DRUGS (7)
  1. ACTEMRA [Suspect]
     Indication: RHEUMATOID ARTHRITIS
     Route: 042
     Dates: start: 20121017
  2. ACTEMRA [Suspect]
     Route: 042
     Dates: start: 20130228
  3. ACTEMRA [Suspect]
     Route: 042
     Dates: start: 20140109
  4. PREDNISONE [Concomitant]
  5. METHOTREXATE [Concomitant]
  6. ZOPICLONE [Concomitant]
  7. OXYCODONE [Concomitant]

REACTIONS (3)
  - Wrist surgery [Unknown]
  - Dental caries [Unknown]
  - Cystitis [Recovered/Resolved]
